FAERS Safety Report 11267396 (Version 1)
Quarter: 2015Q3

REPORT INFORMATION
  Report Type: Spontaneous
  Country: US (occurrence: US)
  Receive Date: 20150713
  Receipt Date: 20150713
  Transmission Date: 20151125
  Serious: Yes (Other)
  Sender: FDA-Public Use
  Company Number: US-MYLANLABS-2015M1022823

PATIENT

DRUGS (10)
  1. ISOFLURANE. [Suspect]
     Active Substance: ISOFLURANE
     Indication: MAINTENANCE OF ANAESTHESIA
     Dosage: 0.7-1.0 PERCENT END-TIDAL IN 40% OXYGEN
     Route: 042
  2. OXYGEN. [Concomitant]
     Active Substance: OXYGEN
     Indication: MAINTENANCE OF ANAESTHESIA
     Dosage: 40% IN ISOFLURANE
     Route: 042
  3. LIDOCAINE. [Suspect]
     Active Substance: LIDOCAINE
     Indication: INDUCTION OF ANAESTHESIA
     Dosage: 100MG
     Route: 042
  4. FENTANYL. [Suspect]
     Active Substance: FENTANYL
     Indication: INDUCTION OF ANAESTHESIA
     Dosage: 50MCG
     Route: 042
  5. NEOSTIGMINE [Concomitant]
     Active Substance: NEOSTIGMINE
     Indication: NEUROMUSCULAR BLOCKADE REVERSAL
     Dosage: 3.5 MG
     Route: 042
  6. GLYCOPYRROLATE                     /00196201/ [Concomitant]
     Active Substance: GLYCOPYRRONIUM
     Indication: NEUROMUSCULAR BLOCKADE REVERSAL
     Dosage: 0.6 MG
     Route: 042
  7. ROCURONIUM BROMIDE. [Concomitant]
     Active Substance: ROCURONIUM BROMIDE
     Indication: ENDOTRACHEAL INTUBATION
     Dosage: 40MG
     Route: 065
  8. CEFAZOLIN [Concomitant]
     Active Substance: CEFAZOLIN
     Indication: ANTIBIOTIC PROPHYLAXIS
     Route: 042
  9. ONDANSETRON [Suspect]
     Active Substance: ONDANSETRON
     Indication: PROPHYLAXIS OF NAUSEA AND VOMITING
     Dosage: 4MG
     Route: 042
  10. PROPOFOL. [Suspect]
     Active Substance: PROPOFOL
     Indication: INDUCTION OF ANAESTHESIA
     Dosage: 130MG
     Route: 042

REACTIONS (2)
  - Irregular breathing [Recovered/Resolved]
  - Dystonia [Recovered/Resolved]
